FAERS Safety Report 7205606-2 (Version None)
Quarter: 2010Q4

REPORT INFORMATION
  Report Type: 
  Country: None (occurrence: None)
  Receive Date: 20101231
  Receipt Date: 20101229
  Transmission Date: 20110411
  Serious: Yes (Hospitalization)
  Sender: FDA-Public Use
  Company Number: DE-BRISTOL-MYERS SQUIBB COMPANY-15453681

PATIENT
  Age: 68 Year
  Sex: Male

DRUGS (8)
  1. BLINDED: DAPAGLIFLOZIN [Suspect]
     Indication: TYPE 2 DIABETES MELLITUS
     Route: 048
     Dates: start: 20100929
  2. METFORMIN HCL [Suspect]
     Dosage: UNK-20JUN10 21JUN10-5DEC10 10DEC2010
     Route: 048
     Dates: start: 20100621
  3. SITAGLIPTIN PHOSPHATE [Suspect]
     Indication: TYPE 2 DIABETES MELLITUS
     Route: 048
     Dates: start: 20100621
  4. PLACEBO [Suspect]
     Indication: TYPE 2 DIABETES MELLITUS
     Route: 048
     Dates: start: 20100929
  5. FENTANYL-100 [Concomitant]
     Indication: PAIN
     Route: 003
  6. OMEPRAZOLE [Concomitant]
     Indication: GASTROOESOPHAGEAL REFLUX DISEASE
     Route: 048
     Dates: start: 20100729
  7. LACTOSE [Concomitant]
     Indication: CONSTIPATION
     Route: 048
     Dates: start: 20100729
  8. FENOFIBRATE [Concomitant]
     Indication: HYPERTRIGLYCERIDAEMIA
     Route: 048

REACTIONS (1)
  - ABDOMINAL PAIN UPPER [None]
